FAERS Safety Report 11759027 (Version 1)
Quarter: 2015Q4

REPORT INFORMATION
  Report Type: Spontaneous
  Country: US (occurrence: US)
  Receive Date: 20151120
  Receipt Date: 20151120
  Transmission Date: 20160304
  Serious: No
  Sender: FDA-Public Use
  Company Number: US-ELI_LILLY_AND_COMPANY-US201209007521

PATIENT
  Sex: Female

DRUGS (1)
  1. FORTEO [Suspect]
     Active Substance: TERIPARATIDE
     Dosage: 20 UG, QD
     Dates: start: 201201, end: 201209

REACTIONS (15)
  - Headache [Unknown]
  - Eructation [Unknown]
  - Feeling abnormal [Unknown]
  - Fatigue [Unknown]
  - Pain [Unknown]
  - Influenza like illness [Unknown]
  - Sleep disorder due to a general medical condition [Unknown]
  - Exercise tolerance decreased [Unknown]
  - Irritable bowel syndrome [Unknown]
  - Chills [Unknown]
  - Flatulence [Unknown]
  - Somatoform disorder [Unknown]
  - Bone pain [Recovered/Resolved]
  - Abdominal distension [Unknown]
  - Malaise [Unknown]
